FAERS Safety Report 7694502-2 (Version None)
Quarter: 2011Q3

REPORT INFORMATION
  Report Type: 
  Country: None (occurrence: None)
  Receive Date: 20110819
  Receipt Date: 20110809
  Transmission Date: 20111222
  Serious: Yes (Other)
  Sender: FDA-Public Use
  Company Number: PHHY2011BR71453

PATIENT
  Sex: Female

DRUGS (8)
  1. ZARGUS [Concomitant]
     Indication: DEPRESSED MOOD
     Dosage: 1 DF, QD
     Route: 048
     Dates: start: 20110401
  2. FERROUS SULFATE TAB [Concomitant]
     Indication: ANAEMIA
     Dosage: UNK UKN, UNK
     Route: 048
  3. LANTUS [Suspect]
     Indication: DIABETES MELLITUS
     Dosage: 12 ML, IN MORNING
  4. EXELON [Suspect]
     Indication: DEMENTIA ALZHEIMER'S TYPE
     Dosage: 1 DF, QD
     Route: 048
  5. METFORMIN HCL [Suspect]
     Indication: DIABETES MELLITUS
     Dosage: 1 DF, AFTER BREAKFAST
     Route: 048
  6. LOSARTAN POTASSIUM [Concomitant]
     Indication: HYPERTENSION
     Dosage: 1 DF, IN MORNING, QD
     Route: 048
  7. ASPIRIN [Concomitant]
     Indication: ANTICOAGULANT THERAPY
     Dosage: 1 DF, QD
     Route: 048
  8. CLONAZEPAM [Concomitant]
     Indication: SLEEP DISORDER
     Dosage: ONE OR A HALF TABLET AT NIGHT
     Route: 048

REACTIONS (10)
  - DEMENTIA ALZHEIMER'S TYPE [None]
  - AGGRESSION [None]
  - FALL [None]
  - NEGATIVE THOUGHTS [None]
  - DEPRESSED MOOD [None]
  - CRYING [None]
  - ABASIA [None]
  - MEMORY IMPAIRMENT [None]
  - RENAL FAILURE [None]
  - FEMUR FRACTURE [None]
